FAERS Safety Report 9696017 (Version 1)
Quarter: 2013Q4

REPORT INFORMATION
  Report Type: Spontaneous
  Country: US (occurrence: None)
  Receive Date: 20131115
  Receipt Date: 20131115
  Transmission Date: 20140711
  Serious: Yes (Hospitalization, Other)
  Sender: FDA-Public Use
  Company Number: 1311-1444

PATIENT
  Sex: Female
  Weight: 53.52 kg

DRUGS (6)
  1. EYELEA (AFLIBERCEPT) (INJECTION) (AFLIBERCEPT) [Suspect]
     Indication: MACULAR DEGENERATION
     Dates: start: 2012
  2. PLAVIX [Suspect]
     Dates: start: 201304
  3. ASPIRIN [Suspect]
     Dates: start: 201304
  4. BENICAR (OLMESARTAN MEDOXOMIL) [Concomitant]
  5. VITAMIN D (ERGOCALCIFEROL) [Concomitant]
  6. CRESTOR (ROSUVASTATIN CALCIUM) [Concomitant]

REACTIONS (2)
  - Gastrointestinal haemorrhage [None]
  - Retinal haemorrhage [None]
